FAERS Safety Report 25323992 (Version 5)
Quarter: 2025Q4

REPORT INFORMATION
  Report Type: Report from Study
  Country: US (occurrence: US)
  Receive Date: 20250516
  Receipt Date: 20251003
  Transmission Date: 20260118
  Serious: Yes (Other)
  Sender: TAKEDA
  Company Number: US-TAKEDA-2025TUS046326

PATIENT
  Sex: Male

DRUGS (26)
  1. IXAZOMIB [Suspect]
     Active Substance: IXAZOMIB
     Indication: Plasma cell myeloma
     Dosage: 3 MILLIGRAM
  2. IXAZOMIB [Suspect]
     Active Substance: IXAZOMIB
     Dosage: 3 MILLIGRAM
  3. IXAZOMIB [Suspect]
     Active Substance: IXAZOMIB
     Dosage: UNK
  4. AMOXICILLIN [Suspect]
     Active Substance: AMOXICILLIN
     Indication: Product used for unknown indication
     Dosage: UNK
  5. AMLODIPINE BESYLATE [Concomitant]
     Active Substance: AMLODIPINE BESYLATE
     Dosage: UNK
  6. LISINOPRIL [Concomitant]
     Active Substance: LISINOPRIL
     Dosage: UNK
  7. OMEPRAZOLE [Concomitant]
     Active Substance: OMEPRAZOLE
     Dosage: UNK
  8. JARDIANCE [Concomitant]
     Active Substance: EMPAGLIFLOZIN
     Dosage: UNK
  9. ALPRAZOLAM [Concomitant]
     Active Substance: ALPRAZOLAM
     Dosage: UNK
  10. ZOFRAN [Concomitant]
     Active Substance: ONDANSETRON HYDROCHLORIDE
     Dosage: UNK
  11. DEXAMETHASONE [Concomitant]
     Active Substance: DEXAMETHASONE
     Dosage: UNK
  12. ASPIRIN [Concomitant]
     Active Substance: ASPIRIN
     Dosage: UNK
  13. REVLIMID [Concomitant]
     Active Substance: LENALIDOMIDE
     Dosage: UNK
  14. ONDANSETRON HYDROCHLORIDE [Concomitant]
     Active Substance: ONDANSETRON HYDROCHLORIDE
     Dosage: UNK
  15. MORPHINE SULFATE [Concomitant]
     Active Substance: MORPHINE SULFATE
     Dosage: UNK
  16. METHOCARBAMOL [Concomitant]
     Active Substance: METHOCARBAMOL
     Dosage: UNK
  17. AZITHROMYCIN [Concomitant]
     Active Substance: AZITHROMYCIN
     Dosage: UNK
  18. VELCADE [Concomitant]
     Active Substance: BORTEZOMIB
     Dosage: UNK
  19. PROCHLORPERAZINE [Concomitant]
     Active Substance: PROCHLORPERAZINE
     Dosage: UNK
  20. COLLAGEN [Concomitant]
     Active Substance: COLLAGEN
     Dosage: UNK
  21. FERROUS SULFATE [Concomitant]
     Active Substance: FERROUS SULFATE
     Dosage: UNK
  22. JWH-018 [Concomitant]
     Active Substance: JWH-018
     Dosage: UNK
  23. ZINC [Concomitant]
     Active Substance: ZINC
     Dosage: UNK
  24. ACYCLOVIR [Concomitant]
     Active Substance: ACYCLOVIR
     Dosage: UNK
  25. VENCLEXTA [Concomitant]
     Active Substance: VENETOCLAX
     Dosage: UNK
  26. BENZALKONIUM CHLORIDE\SODIUM CHLORIDE [Concomitant]
     Active Substance: BENZALKONIUM CHLORIDE\SODIUM CHLORIDE
     Dosage: UNK

REACTIONS (7)
  - Dizziness [Not Recovered/Not Resolved]
  - Fatigue [Not Recovered/Not Resolved]
  - Constipation [Not Recovered/Not Resolved]
  - Blood iron decreased [Recovered/Resolved]
  - Toothache [Not Recovered/Not Resolved]
  - Anaemia [Unknown]
  - Nausea [Not Recovered/Not Resolved]
